FAERS Safety Report 18794259 (Version 1)
Quarter: 2021Q1

REPORT INFORMATION
  Report Type: Spontaneous
  Country: US (occurrence: US)
  Receive Date: 20210127
  Receipt Date: 20210127
  Transmission Date: 20210419
  Serious: No
  Sender: FDA-Public Use
  Company Number: US-PERRIGO-20US007972

PATIENT
  Age: 1 Year
  Sex: Male
  Weight: 11.34 kg

DRUGS (2)
  1. IBUPROFEN. [Suspect]
     Active Substance: IBUPROFEN
     Indication: PYREXIA
     Dosage: 75 MG, EVERY 6 HOURS
     Route: 048
     Dates: start: 20200526, end: 20200529
  2. IBUPROFEN. [Suspect]
     Active Substance: IBUPROFEN
     Indication: PYREXIA
     Dosage: 75 MG, EVERY 6 HOURS
     Route: 048
     Dates: start: 20200526, end: 20200529

REACTIONS (2)
  - Throat irritation [Recovered/Resolved]
  - Screaming [Recovered/Resolved]

NARRATIVE: CASE EVENT DATE: 20200526
